FAERS Safety Report 6684124-4 (Version None)
Quarter: 2010Q2

REPORT INFORMATION
  Report Type: 
  Country: None (occurrence: None)
  Receive Date: 20100416
  Receipt Date: 20100408
  Transmission Date: 20101027
  Serious: Yes (Other)
  Sender: FDA-Public Use
  Company Number: PHEH2010US01790

PATIENT
  Sex: Male

DRUGS (1)
  1. EXJADE [Suspect]
     Dosage: 1750 MG, DAILY
     Route: 048

REACTIONS (3)
  - BRONCHITIS [None]
  - THROAT IRRITATION [None]
  - VISUAL IMPAIRMENT [None]
